FAERS Safety Report 8333974 (Version 2)
Quarter: 2012Q4

REPORT INFORMATION
  Report Type: 
  Country: CA (occurrence: CA)
  Receive Date: 20120112
  Receipt Date: 20121217
  Transmission Date: 20130627
  Serious: Yes (Other)
  Sender: FDA-Public Use
  Company Number: CA-JNJFOC-20120102918

PATIENT
  Age: 51 Year
  Sex: Female
  Weight: 73 kg

DRUGS (6)
  1. REMICADE [Suspect]
     Indication: RHEUMATOID ARTHRITIS
     Dosage: total number of infusions patient received-62
     Route: 042
     Dates: start: 20120223
  2. REMICADE [Suspect]
     Indication: RHEUMATOID ARTHRITIS
     Route: 042
     Dates: start: 20010530, end: 20111209
  3. METHOTREXATE [Concomitant]
     Indication: RHEUMATOID ARTHRITIS
     Route: 065
     Dates: start: 1997
  4. FOLIC ACID [Concomitant]
     Route: 065
     Dates: start: 1997
  5. PLAQUENIL [Concomitant]
     Route: 065
     Dates: start: 1998
  6. MELOXICAM [Concomitant]
     Route: 065
     Dates: start: 2007

REACTIONS (4)
  - Pneumonia [Recovered/Resolved]
  - Genital herpes [Recovered/Resolved]
  - Vulvitis [Not Recovered/Not Resolved]
  - Urinary tract infection [Recovered/Resolved]
